FAERS Safety Report 10775523 (Version 1)
Quarter: 2015Q1

REPORT INFORMATION
  Report Type: Spontaneous
  Country: RU (occurrence: RU)
  Receive Date: 20150209
  Receipt Date: 20150209
  Transmission Date: 20150721
  Serious: Yes (Other)
  Sender: FDA-Public Use
  Company Number: RU-TEVA-538655ISR

PATIENT
  Sex: Male

DRUGS (1)
  1. BECLAZONE ECO [Suspect]
     Active Substance: BECLOMETHASONE DIPROPIONATE

REACTIONS (2)
  - Haemorrhage [Unknown]
  - Rash [Unknown]
